FAERS Safety Report 14038524 (Version 1)
Quarter: 2017Q4

REPORT INFORMATION
  Report Type: Spontaneous
  Country: JP (occurrence: JP)
  Receive Date: 20171004
  Receipt Date: 20171004
  Transmission Date: 20180321
  Serious: Yes (Other)
  Sender: FDA-Public Use
  Company Number: JP-PFIZER INC-2017421554

PATIENT
  Age: 84 Year
  Sex: Female

DRUGS (1)
  1. VFEND [Suspect]
     Active Substance: VORICONAZOLE
     Dosage: UNK
     Route: 041
     Dates: start: 20170813, end: 20170906

REACTIONS (2)
  - Cytomegalovirus infection [Recovering/Resolving]
  - Liver function test abnormal [Recovering/Resolving]
